FAERS Safety Report 5738593-4 (Version None)
Quarter: 2008Q2

REPORT INFORMATION
  Report Type: 
  Country: None (occurrence: None)
  Receive Date: 20080513
  Receipt Date: 20080513
  Transmission Date: 20081010
  Serious: Yes (Other)
  Sender: FDA-Public Use
  Company Number: 2008AL002882

PATIENT
  Age: 89 Year
  Sex: Male

DRUGS (4)
  1. DIGOXIN [Suspect]
     Indication: CARDIAC OPERATION
     Dosage: 0.25 MG DAILY PO
     Route: 048
  2. LASIX [Concomitant]
  3. LIPITOR [Concomitant]
  4. PLAVIX [Concomitant]

REACTIONS (4)
  - BACK PAIN [None]
  - CHILLS [None]
  - EPISTAXIS [None]
  - MUSCULOSKELETAL PAIN [None]
